FAERS Safety Report 22139300 (Version 1)
Quarter: 2023Q1

REPORT INFORMATION
  Report Type: Report from Study
  Country: US (occurrence: US)
  Receive Date: 20230327
  Receipt Date: 20230327
  Transmission Date: 20230417
  Serious: Yes (Other)
  Sender: FDA-Public Use
  Company Number: US-ABBVIE-22K-163-4473246-00

PATIENT
  Age: 58 Year
  Sex: Female

DRUGS (1)
  1. HUMIRA [Suspect]
     Active Substance: ADALIMUMAB
     Indication: Rheumatoid arthritis
     Dosage: CITRATE FREE
     Route: 058
     Dates: start: 20220524

REACTIONS (5)
  - Fall [Unknown]
  - COVID-19 [Recovering/Resolving]
  - Ankle fracture [Unknown]
  - Diplegia [Unknown]
  - Joint injury [Unknown]

NARRATIVE: CASE EVENT DATE: 20220713
